FAERS Safety Report 6397094-3 (Version None)
Quarter: 2009Q4

REPORT INFORMATION
  Report Type: 
  Country: None (occurrence: None)
  Receive Date: 20091012
  Receipt Date: 20090929
  Transmission Date: 20100525
  Serious: Yes (Hospitalization)
  Sender: FDA-Public Use
  Company Number: FI-JNJFOC-20040604964

PATIENT
  Age: 39 Year
  Sex: Male
  Weight: 125 kg

DRUGS (8)
  1. ACETAMINOPHEN [Suspect]
     Route: 048
  2. ACETAMINOPHEN [Suspect]
     Indication: SUICIDE ATTEMPT
     Route: 048
  3. TRAMADOL HCL [Suspect]
     Indication: SUICIDE ATTEMPT
  4. ALCOHOL [Suspect]
     Indication: SUICIDE ATTEMPT
  5. DIAZEPAM [Suspect]
     Indication: SUICIDE ATTEMPT
  6. KETOPROFEN [Suspect]
     Indication: SUICIDE ATTEMPT
  7. OLANZAPINE [Concomitant]
  8. CITALOPRAM HYDROBROMIDE [Concomitant]

REACTIONS (6)
  - ANURIA [None]
  - DIARRHOEA [None]
  - HEPATIC FAILURE [None]
  - NAUSEA [None]
  - OVERDOSE [None]
  - POLYNEUROPATHY [None]
